FAERS Safety Report 8514425-6 (Version None)
Quarter: 2012Q3

REPORT INFORMATION
  Report Type: 
  Country: None (occurrence: None)
  Receive Date: 20120717
  Receipt Date: 20120710
  Transmission Date: 20120928
  Serious: Yes (Other)
  Sender: FDA-Public Use
  Company Number: US-PFIZER INC-2012149513

PATIENT
  Sex: Female

DRUGS (5)
  1. GLUCOPHAGE [Suspect]
     Indication: DIABETES MELLITUS
     Dosage: 500 MG, 1X/DAY
     Route: 048
  2. LISINOPRIL [Concomitant]
     Indication: BLOOD PRESSURE ABNORMAL
     Dosage: 5 MG, DAILY
     Route: 048
  3. ASPIRIN [Concomitant]
     Dosage: 81 MG, DAILY
  4. PROCARDIA XL [Suspect]
     Indication: BLOOD PRESSURE ABNORMAL
     Dosage: 30 MG, DAILY
     Route: 048
  5. PROCARDIA XL [Suspect]
     Dosage: 60 MG, QD
     Dates: start: 19900816

REACTIONS (5)
  - STRESS [None]
  - RENAL DISORDER [None]
  - DIABETES MELLITUS [None]
  - WEIGHT DECREASED [None]
  - WEIGHT INCREASED [None]
